FAERS Safety Report 21322106 (Version 2)
Quarter: 2022Q4

REPORT INFORMATION
  Report Type: Spontaneous
  Country: US (occurrence: US)
  Receive Date: 20220912
  Receipt Date: 20221031
  Transmission Date: 20230113
  Serious: Yes (Other)
  Sender: FDA-Public Use
  Company Number: US-JNJFOC-20220915419

PATIENT
  Age: 5 Decade
  Sex: Female

DRUGS (13)
  1. ELMIRON [Suspect]
     Active Substance: PENTOSAN POLYSULFATE SODIUM
     Indication: Cystitis interstitial
     Dosage: ORAL AND BLADDER INSTILLATION
     Route: 048
     Dates: start: 201006, end: 201712
  2. GABAPENTIN [Concomitant]
     Active Substance: GABAPENTIN
     Indication: Fibromyalgia
     Dates: start: 2014
  3. TIZANIDINE [Concomitant]
     Active Substance: TIZANIDINE
     Indication: Pelvic floor dysfunction
     Dates: start: 2010
  4. ACETAMINOPHEN\HYDROCODONE [Concomitant]
     Active Substance: ACETAMINOPHEN\HYDROCODONE
     Indication: Fibromyalgia
     Dates: start: 2011
  5. ACETAMINOPHEN\HYDROCODONE [Concomitant]
     Active Substance: ACETAMINOPHEN\HYDROCODONE
     Indication: Analgesic therapy
  6. CYMBALTA [Concomitant]
     Active Substance: DULOXETINE HYDROCHLORIDE
     Indication: Fibromyalgia
     Dates: start: 2017
  7. TOPAMAX [Concomitant]
     Active Substance: TOPIRAMATE
     Indication: Vestibular migraine
     Dates: start: 2017
  8. PROPRANOLOL [Concomitant]
     Active Substance: PROPRANOLOL HYDROCHLORIDE
     Indication: Vestibular migraine
     Dates: start: 2017
  9. UBRELVY [Concomitant]
     Active Substance: UBROGEPANT
     Indication: Vestibular migraine
     Dates: start: 2017
  10. AIMOVIG [Concomitant]
     Active Substance: ERENUMAB-AOOE
     Indication: Vestibular migraine
     Dates: start: 2017
  11. METFORMIN [Concomitant]
     Active Substance: METFORMIN HYDROCHLORIDE
     Indication: Diabetes mellitus
     Dates: start: 2011, end: 2017
  12. MECLIZINE [Concomitant]
     Active Substance: MECLIZINE HYDROCHLORIDE
     Indication: Dizziness
     Dates: start: 2014, end: 2017
  13. MONTELUKAST [Concomitant]
     Active Substance: MONTELUKAST SODIUM
     Indication: Multiple allergies
     Dates: start: 2017, end: 2021

REACTIONS (2)
  - Retinal pigmentation [Unknown]
  - Off label use [Unknown]

NARRATIVE: CASE EVENT DATE: 20170101
